FAERS Safety Report 8962628 (Version 4)
Quarter: 2013Q2

REPORT INFORMATION
  Report Type: Spontaneous
  Country: US (occurrence: US)
  Receive Date: 20121213
  Receipt Date: 20130416
  Transmission Date: 20140414
  Serious: Yes (Hospitalization, Other)
  Sender: FDA-Public Use
  Company Number: US-009507513-1206USA03582

PATIENT
  Sex: Female

DRUGS (2)
  1. FOSAMAX [Suspect]
     Indication: OSTEOPENIA
     Dosage: 70 MG, UNK
     Route: 048
     Dates: start: 20030322, end: 20080527
  2. PREDNISONE [Concomitant]
     Dosage: 5 MG, QD

REACTIONS (37)
  - Intramedullary rod insertion [Unknown]
  - Hip arthroplasty [Unknown]
  - Lipase increased [Unknown]
  - Pulmonary mass [Unknown]
  - Blood sodium decreased [Recovered/Resolved]
  - Hypertension [Unknown]
  - Joint dislocation [Unknown]
  - Femur fracture [Unknown]
  - Osteonecrosis of jaw [Unknown]
  - Biopsy bone [Unknown]
  - Gingival infection [Unknown]
  - Vitamin D deficiency [Unknown]
  - Dental fistula [Not Recovered/Not Resolved]
  - Tooth infection [Unknown]
  - Tooth abscess [Unknown]
  - Apicectomy [Not Recovered/Not Resolved]
  - Endodontic procedure [Unknown]
  - Tooth repair [Unknown]
  - Abscess oral [Unknown]
  - Tooth extraction [Unknown]
  - Dental caries [Unknown]
  - Oral discomfort [Unknown]
  - Tooth fracture [Unknown]
  - Soft tissue inflammation [Unknown]
  - Injury [Unknown]
  - Hydrocephalus [Unknown]
  - Bone loss [Unknown]
  - Osteoarthritis [Unknown]
  - Arrhythmia [Unknown]
  - Hypercholesterolaemia [Unknown]
  - Depression [Unknown]
  - Medical device complication [Unknown]
  - Rib fracture [Unknown]
  - Compression fracture [Unknown]
  - Breast lump removal [Unknown]
  - Gastric ulcer [Unknown]
  - Gastrooesophageal reflux disease [Unknown]
